FAERS Safety Report 5720612-2 (Version None)
Quarter: 2008Q2

REPORT INFORMATION
  Report Type: 
  Country: None (occurrence: None)
  Receive Date: 20080429
  Receipt Date: 20080415
  Transmission Date: 20081010
  Serious: No
  Sender: FDA-Public Use
  Company Number: US-BAYER-200819988NA

PATIENT
  Age: 22 Year
  Sex: Female
  Weight: 54 kg

DRUGS (3)
  1. YAZ [Suspect]
     Indication: PREMENSTRUAL SYNDROME
     Route: 048
     Dates: start: 20080328
  2. XANAX [Concomitant]
     Indication: ANXIETY
     Dosage: TOTAL DAILY DOSE: 0.50 MG
     Dates: end: 20080413
  3. XANAX [Concomitant]
     Dosage: TOTAL DAILY DOSE: 0.75 MG
     Dates: start: 20080413

REACTIONS (2)
  - DEPRESSION [None]
  - PREMENSTRUAL SYNDROME [None]
